FAERS Safety Report 7631742-2 (Version None)
Quarter: 2011Q3

REPORT INFORMATION
  Report Type: 
  Country: None (occurrence: None)
  Receive Date: 20110725
  Receipt Date: 20110328
  Transmission Date: 20111222
  Serious: Yes (Other)
  Sender: FDA-Public Use
  Company Number: US-BRISTOL-MYERS SQUIBB COMPANY-15575459

PATIENT
  Age: 45 Year
  Sex: Female
  Weight: 73 kg

DRUGS (8)
  1. VITAMIN TAB [Concomitant]
  2. COUMADIN [Suspect]
  3. ACIDOPHILUS [Concomitant]
  4. FOLIC ACID [Concomitant]
  5. PERCOCET [Concomitant]
  6. ORENCIA [Suspect]
     Dates: start: 20110201
  7. METHOTREXATE [Concomitant]
  8. CALCITRATE [Concomitant]

REACTIONS (1)
  - INTERNATIONAL NORMALISED RATIO DECREASED [None]
